FAERS Safety Report 22517298 (Version 2)
Quarter: 2024Q3

REPORT INFORMATION
  Report Type: Spontaneous
  Country: US (occurrence: None)
  Receive Date: 20230603
  Receipt Date: 20240905
  Transmission Date: 20241017
  Serious: No
  Sender: ASTRAZENECA
  Company Number: 2023A126802

PATIENT
  Age: 66 Year
  Sex: Female

DRUGS (3)
  1. TAGRISSO [Suspect]
     Active Substance: OSIMERTINIB
     Indication: Lung neoplasm malignant
     Route: 048
  2. TAGRISSO [Suspect]
     Active Substance: OSIMERTINIB
     Indication: Lung carcinoma cell type unspecified stage I
     Route: 048
  3. DUPIXENT [Suspect]
     Active Substance: DUPILUMAB
     Route: 058
     Dates: start: 202301

REACTIONS (13)
  - Dermatitis atopic [Unknown]
  - Myalgia [Recovering/Resolving]
  - Tendon pain [Recovering/Resolving]
  - Arthralgia [Recovering/Resolving]
  - Tendonitis [Unknown]
  - Blister [Unknown]
  - Fatigue [Recovered/Resolved]
  - Rash [Unknown]
  - Dry skin [Unknown]
  - Pruritus [Not Recovered/Not Resolved]
  - Food allergy [Unknown]
  - Muscle spasms [Unknown]
  - Nausea [Unknown]

NARRATIVE: CASE EVENT DATE: 20230101
